FAERS Safety Report 9269322 (Version 1)
Quarter: 2013Q2

REPORT INFORMATION
  Report Type: Spontaneous
  Country: US (occurrence: US)
  Receive Date: 20130503
  Receipt Date: 20130503
  Transmission Date: 20140414
  Serious: No
  Sender: FDA-Public Use
  Company Number: US-PFIZER INC-2013136407

PATIENT
  Age: 27 Year
  Sex: Male
  Weight: 68.7 kg

DRUGS (4)
  1. SUTENT [Suspect]
     Indication: GASTROINTESTINAL STROMAL TUMOUR
     Dosage: 50 MG, 1X/DAY
     Route: 048
     Dates: start: 20120530, end: 201304
  2. MIRTAZAPINE [Concomitant]
     Dosage: UNK
     Dates: start: 20120521
  3. ATIVAN [Concomitant]
     Dosage: UNK
  4. COLACE [Concomitant]
     Dosage: UNK

REACTIONS (2)
  - Disease progression [Not Recovered/Not Resolved]
  - Gastrointestinal stromal tumour [Not Recovered/Not Resolved]
